FAERS Safety Report 4619084-0 (Version None)
Quarter: 2005Q1

REPORT INFORMATION
  Report Type: 
  Country: None (occurrence: None)
  Receive Date: 20050318
  Receipt Date: 20050318
  Transmission Date: 20050727
  Serious: Yes (Hospitalization)
  Sender: FDA-Public Use
  Company Number: None

PATIENT
  Sex: Male
  Weight: 40.3701 kg

DRUGS (1)
  1. PENICILLIN [Suspect]
     Indication: TOOTH INFECTION
     Dosage: [PRIOR TO ADMISSION]

REACTIONS (3)
  - DYSPHAGIA [None]
  - NAUSEA [None]
  - THROAT TIGHTNESS [None]
